FAERS Safety Report 25145593 (Version 1)
Quarter: 2025Q2

REPORT INFORMATION
  Report Type: Spontaneous
  Country: US (occurrence: None)
  Receive Date: 20250331
  Receipt Date: 20250331
  Transmission Date: 20250717
  Serious: No
  Sender: FDA-CTU
  Company Number: None

PATIENT
  Age: 28 Year
  Sex: Male

DRUGS (9)
  1. TALTZ [Suspect]
     Active Substance: IXEKIZUMAB
     Indication: Hyperlipidaemia
     Dosage: FREQUENCY : EVERY OTHER WEEK;?
     Route: 058
     Dates: start: 20241209, end: 20250204
  2. ASPIRIN 81 MG CHEWABLE TABLETS [Concomitant]
  3. ATORVASTATIN [Concomitant]
     Active Substance: ATORVASTATIN
  4. FOLIC ACID [Concomitant]
     Active Substance: FOLIC ACID
  5. LISINOPRIL [Concomitant]
     Active Substance: LISINOPRIL
  6. METOPROLOL ER SUGGINATE 100MG TABS [Concomitant]
  7. PRILOSEG 1 0MG CAPSULES [Concomitant]
  8. VITAMIN D 1,000IU SOFTGELS [Concomitant]
  9. WARFARIN SOD 2.5MG TABLETS (GREEN) [Concomitant]

REACTIONS (1)
  - Gastrointestinal haemorrhage [None]
